FAERS Safety Report 7089071-4 (Version None)
Quarter: 2010Q4

REPORT INFORMATION
  Report Type: 
  Country: None (occurrence: None)
  Receive Date: 20101108
  Receipt Date: 20101027
  Transmission Date: 20110411
  Serious: Yes (Hospitalization)
  Sender: FDA-Public Use
  Company Number: B0682507A

PATIENT
  Age: 47 Year
  Sex: Male

DRUGS (6)
  1. ADEFOVIR DIPIVOXIL KIT [Suspect]
     Indication: HEPATITIS B
     Dosage: 10MG PER DAY
     Route: 065
  2. LAMIVUDINE-HBV [Suspect]
     Indication: HEPATITIS B
     Route: 065
  3. ZONISAMIDE [Concomitant]
  4. CARBAMAZEPINE [Concomitant]
  5. VALPROIC ACID [Concomitant]
  6. CLONAZEPAM [Concomitant]
     Indication: EPILEPSY

REACTIONS (18)
  - ARTHRALGIA [None]
  - BACK PAIN [None]
  - BLOOD ALKALINE PHOSPHATASE INCREASED [None]
  - BLOOD BICARBONATE DECREASED [None]
  - BLOOD CREATININE INCREASED [None]
  - FANCONI SYNDROME ACQUIRED [None]
  - GLYCOSURIA [None]
  - HYPOKALAEMIA [None]
  - HYPOPHOSPHATAEMIA [None]
  - METABOLIC ACIDOSIS [None]
  - MUSCULOSKELETAL CHEST PAIN [None]
  - OSTEOMALACIA [None]
  - PATHOGEN RESISTANCE [None]
  - POLYURIA [None]
  - PROTEINURIA [None]
  - RIB FRACTURE [None]
  - SPINAL OSTEOARTHRITIS [None]
  - WALKING AID USER [None]
